FAERS Safety Report 7773372-8 (Version None)
Quarter: 2011Q3

REPORT INFORMATION
  Report Type: 
  Country: None (occurrence: None)
  Receive Date: 20110922
  Receipt Date: 20110913
  Transmission Date: 20111222
  Serious: Yes (Hospitalization, Other)
  Sender: FDA-Public Use
  Company Number: US-ASTRAZENECA-2010SE46634

PATIENT
  Age: 67 Year
  Sex: Female

DRUGS (2)
  1. OTHER MEDICATIONS [Concomitant]
  2. NEXIUM [Suspect]
     Route: 048

REACTIONS (6)
  - ABDOMINAL DISCOMFORT [None]
  - DRUG DOSE OMISSION [None]
  - MALAISE [None]
  - OCULAR NEOPLASM [None]
  - VOMITING [None]
  - CEREBROVASCULAR ACCIDENT [None]
